FAERS Safety Report 10018467 (Version 1)
Quarter: 2014Q1

REPORT INFORMATION
  Report Type: Spontaneous
  Country: US (occurrence: None)
  Receive Date: 20140314
  Receipt Date: 20140314
  Transmission Date: 20141002
  Serious: Yes (Other)
  Sender: FDA-Public Use
  Company Number: None

PATIENT
  Age: 49 Year
  Sex: Female
  Weight: 83.92 kg

DRUGS (11)
  1. REMICADE [Suspect]
     Indication: PSORIATIC ARTHROPATHY
     Dates: start: 20130131, end: 20140119
  2. HUMIRA [Suspect]
  3. ENBREL [Suspect]
  4. LEXAPRO [Concomitant]
  5. NEXIUM [Concomitant]
  6. FOLIC ACID [Concomitant]
  7. METHOTREXATE [Concomitant]
  8. VITAMIN D [Concomitant]
  9. B COMPLEX [Concomitant]
  10. BIOTIN [Concomitant]
  11. TUMERIC [Concomitant]

REACTIONS (4)
  - Pustular psoriasis [None]
  - Onychomadesis [None]
  - Alopecia [None]
  - Psoriasis [None]
